FAERS Safety Report 18287041 (Version 1)
Quarter: 2020Q3

REPORT INFORMATION
  Report Type: Spontaneous
  Country: FR (occurrence: FR)
  Receive Date: 20200921
  Receipt Date: 20200921
  Transmission Date: 20201103
  Serious: Yes (Hospitalization)
  Sender: FDA-Public Use
  Company Number: FR-COEPTIS PHARMACEUTICALS, INC.-COE-2020-000039

PATIENT
  Age: 13 Year
  Sex: Female
  Weight: 50 kg

DRUGS (2)
  1. AMLODIPINE [Suspect]
     Active Substance: AMLODIPINE BESYLATE
     Dosage: 150 MG
     Route: 048
  2. RAMIPRIL. [Suspect]
     Active Substance: RAMIPRIL
     Dosage: 200 MG
     Route: 048

REACTIONS (6)
  - Acute kidney injury [Recovered/Resolved]
  - Intentional overdose [Recovered/Resolved]
  - Blood pressure difference of extremities [Recovered/Resolved]
  - Bundle branch block right [Recovered/Resolved]
  - Vasoplegia syndrome [Recovered/Resolved]
  - Hyperkinetic heart syndrome [Recovered/Resolved]
